FAERS Safety Report 9307731 (Version 1)
Quarter: 2013Q2

REPORT INFORMATION
  Report Type: Spontaneous
  Country: US (occurrence: US)
  Receive Date: 20130524
  Receipt Date: 20130524
  Transmission Date: 20140414
  Serious: No
  Sender: FDA-Public Use
  Company Number: US-PFIZER INC-2013156758

PATIENT
  Age: 63 Year
  Sex: Male

DRUGS (5)
  1. LIPITOR [Suspect]
     Indication: BLOOD CHOLESTEROL INCREASED
     Dosage: UNK
  2. ANDROGEL [Suspect]
     Indication: BLOOD TESTOSTERONE DECREASED
     Dosage: 81 MG, 1X/DAY (4 PUMPS)
     Route: 061
  3. TOPROL [Concomitant]
     Dosage: UNK
  4. XANAX [Concomitant]
     Dosage: UNK
  5. AXIRON [Concomitant]
     Indication: BLOOD TESTOSTERONE DECREASED
     Dosage: UNK
     Dates: start: 2012, end: 2012

REACTIONS (6)
  - Hepatic steatosis [Unknown]
  - Hepatic enzyme increased [Unknown]
  - Weight increased [Unknown]
  - Blood pressure decreased [Unknown]
  - Stress [Unknown]
  - Hypometabolism [Unknown]
